FAERS Safety Report 8360743-4 (Version None)
Quarter: 2012Q2

REPORT INFORMATION
  Report Type: 
  Country: None (occurrence: None)
  Receive Date: 20120515
  Receipt Date: 20120510
  Transmission Date: 20120825
  Serious: Yes (Other)
  Sender: FDA-Public Use
  Company Number: CA-ABBOTT-12P-028-0934357-00

PATIENT
  Sex: Female

DRUGS (1)
  1. HUMIRA [Suspect]
     Indication: CROHN'S DISEASE
     Route: 058
     Dates: start: 20100224, end: 20120301

REACTIONS (4)
  - FUNGAL INFECTION [None]
  - ABDOMINAL ADHESIONS [None]
  - COLOSTOMY [None]
  - IMPAIRED HEALING [None]
